FAERS Safety Report 10360358 (Version 2)
Quarter: 2014Q3

REPORT INFORMATION
  Report Type: Spontaneous
  Country: DK (occurrence: DK)
  Receive Date: 20140804
  Receipt Date: 20140804
  Transmission Date: 20150326
  Serious: Yes (Other)
  Sender: FDA-Public Use
  Company Number: PHHY2013DK079252

PATIENT
  Age: 67 Year
  Sex: Male

DRUGS (2)
  1. VANCOMYCIN [Concomitant]
     Active Substance: VANCOMYCIN
     Indication: PERITONITIS
     Dates: start: 20100930, end: 20101026
  2. GENTAMICIN [Suspect]
     Active Substance: GENTAMICIN
     Indication: PERITONITIS
     Dosage: 60 MG, UNK
     Route: 042
     Dates: start: 20100930, end: 20101026

REACTIONS (5)
  - Balance disorder [Not Recovered/Not Resolved]
  - VIIIth nerve injury [Not Recovered/Not Resolved]
  - Vestibular disorder [Not Recovered/Not Resolved]
  - Ototoxicity [Not Recovered/Not Resolved]
  - Dizziness [Unknown]

NARRATIVE: CASE EVENT DATE: 201010
